FAERS Safety Report 10029366 (Version 1)
Quarter: 2014Q1

REPORT INFORMATION
  Report Type: Spontaneous
  Country: AU (occurrence: AU)
  Receive Date: 20140322
  Receipt Date: 20140322
  Transmission Date: 20141002
  Serious: Yes (Other)
  Sender: FDA-Public Use
  Company Number: PHHY2014AU032943

PATIENT
  Age: 32 Year
  Sex: Male

DRUGS (14)
  1. CICLOSPORIN [Suspect]
     Indication: IMMUNOSUPPRESSION
  2. PREDNISOLONE [Suspect]
     Indication: ARTHRITIS
     Dosage: 5 MG, DAILY
     Route: 048
  3. PREDNISOLONE [Suspect]
     Dosage: 50 MG, DAILY
  4. PREDNISOLONE [Suspect]
     Dosage: 25 MG
  5. BASILIXIMAB [Suspect]
     Indication: IMMUNOSUPPRESSION
  6. MYCOPHENOLATE MOFETIL [Suspect]
     Indication: IMMUNOSUPPRESSION
  7. RIFAMPICIN [Suspect]
     Indication: IMMUNOSUPPRESSION
  8. CLARITHROMYCIN [Suspect]
  9. TACROLIMUS [Suspect]
     Indication: IMMUNOSUPPRESSION
     Dosage: 3 MG, BID
  10. TACROLIMUS [Suspect]
     Dosage: 8 MG, BID
  11. CIPROFLOXACIN [Suspect]
  12. SIROLIMUS [Suspect]
  13. DAPSONE [Suspect]
     Indication: INFECTION PROPHYLAXIS
  14. DAPSONE [Suspect]
     Indication: ANTIFUNGAL PROPHYLAXIS

REACTIONS (16)
  - Transplant rejection [Unknown]
  - Toxicity to various agents [Unknown]
  - Acid fast bacilli infection [Unknown]
  - Staphylococcal infection [Unknown]
  - Mycobacterial infection [Unknown]
  - Granuloma [Unknown]
  - Epistaxis [Unknown]
  - Nasal disorder [Unknown]
  - Rhinalgia [Unknown]
  - Fatigue [Unknown]
  - Dyspnoea exertional [Unknown]
  - Pancytopenia [Unknown]
  - Arthritis [Unknown]
  - Erythema nodosum [Unknown]
  - Inflammation [Unknown]
  - Disease recurrence [Unknown]
